FAERS Safety Report 6087278-6 (Version None)
Quarter: 2009Q1

REPORT INFORMATION
  Report Type: 
  Country: None (occurrence: None)
  Receive Date: 20090223
  Receipt Date: 20090217
  Transmission Date: 20090719
  Serious: Yes (Hospitalization)
  Sender: FDA-Public Use
  Company Number: A0701535A

PATIENT
  Age: 55 Year
  Sex: Male
  Weight: 109.1 kg

DRUGS (5)
  1. AVANDIA [Suspect]
     Dosage: 4MG PER DAY
     Route: 048
     Dates: start: 20020113, end: 20051226
  2. NOVOLIN [Concomitant]
  3. STARLIX [Concomitant]
     Dates: start: 20030901
  4. ZOLOFT [Concomitant]
  5. VASOTEC [Concomitant]

REACTIONS (9)
  - ANXIETY [None]
  - ARTERIOSCLEROSIS [None]
  - CARDIAC FAILURE CONGESTIVE [None]
  - CORONARY ARTERY DISEASE [None]
  - ESSENTIAL HYPERTENSION [None]
  - HYPERLIPIDAEMIA [None]
  - INJURY [None]
  - MYOCARDIAL INFARCTION [None]
  - PAIN [None]
